FAERS Safety Report 23074690 (Version 1)
Quarter: 2023Q4

REPORT INFORMATION
  Report Type: Spontaneous
  Country: US (occurrence: None)
  Receive Date: 20231016
  Receipt Date: 20231016
  Transmission Date: 20240110
  Serious: Yes (Other)
  Sender: FDA-Public Use
  Company Number: None

PATIENT
  Sex: Female

DRUGS (25)
  1. TADALAFIL [Suspect]
     Active Substance: TADALAFIL
     Indication: Pulmonary hypertension
     Dosage: FREQUENCY : DAILY;?
     Route: 048
     Dates: start: 20230329
  2. ACETAMINOPHEN [Concomitant]
     Active Substance: ACETAMINOPHEN
  3. AZATHIOPRINE [Concomitant]
     Active Substance: AZATHIOPRINE
  4. CALCIUM TAB VIT D [Concomitant]
  5. CALCIUM\CHOLECALCIFEROL [Concomitant]
     Active Substance: CALCIUM\CHOLECALCIFEROL
  6. CRESTOR [Concomitant]
     Active Substance: ROSUVASTATIN CALCIUM
  7. FARXIGA [Concomitant]
     Active Substance: DAPAGLIFLOZIN PROPANEDIOL
  8. FERROUS SULFATE [Concomitant]
     Active Substance: FERROUS SULFATE
  9. FERROUS SULFATE [Concomitant]
     Active Substance: FERROUS SULFATE
  10. GLIMEPIRIDE [Concomitant]
     Active Substance: GLIMEPIRIDE
  11. HYDROCHLOROT CAP [Concomitant]
  12. HYDROCORT AC SUP [Concomitant]
  13. HYDROXYCHLOROQUINE [Concomitant]
     Active Substance: HYDROXYCHLOROQUINE
  14. METFORMIN [Concomitant]
     Active Substance: METFORMIN HYDROCHLORIDE
  15. METOPROL SUC TAB ER [Concomitant]
  16. METOPROL TAR TAB [Concomitant]
  17. OMEPRAZOLE [Concomitant]
     Active Substance: OMEPRAZOLE
  18. OMEPRAZOLE [Concomitant]
     Active Substance: OMEPRAZOLE
  19. POT CHLORIDE 10MEQ ER [Concomitant]
  20. POT CITRA ER [Concomitant]
  21. ROSUVASTATIN [Concomitant]
     Active Substance: ROSUVASTATIN
  22. ROVASTATIN TAB 5MG [Concomitant]
  23. STIOLTO AER [Concomitant]
  24. TYLENOL [Concomitant]
     Active Substance: ACETAMINOPHEN
  25. VITAMIN B12 [Concomitant]
     Active Substance: CYANOCOBALAMIN

REACTIONS (2)
  - Lymphoma [None]
  - Bladder disorder [None]
